FAERS Safety Report 7743144-9 (Version None)
Quarter: 2011Q3

REPORT INFORMATION
  Report Type: 
  Country: None (occurrence: None)
  Receive Date: 20110912
  Receipt Date: 20110906
  Transmission Date: 20111222
  Serious: Yes (Hospitalization)
  Sender: FDA-Public Use
  Company Number: AT-ALLERGAN-1107777US

PATIENT
  Age: 72 Year
  Sex: Female

DRUGS (2)
  1. LEVOTHYROXINE SODIUM [Concomitant]
     Indication: HYPOTHYROIDISM
     Dosage: UNK
  2. TROSPIUM CHLORIDE [Suspect]
     Indication: URGE INCONTINENCE
     Dosage: 60 MG, QD
     Route: 048
     Dates: start: 20101101

REACTIONS (1)
  - ILEUS [None]
